FAERS Safety Report 21898659 (Version 1)
Quarter: 2023Q1

REPORT INFORMATION
  Report Type: Spontaneous
  Country: AU (occurrence: None)
  Receive Date: 20230123
  Receipt Date: 20230123
  Transmission Date: 20230418
  Serious: Yes (Other)
  Sender: FDA-Public Use
  Company Number: 2023A017812

PATIENT
  Sex: Female

DRUGS (11)
  1. ESOMEPRAZOLE [Suspect]
     Active Substance: ESOMEPRAZOLE
     Indication: Mast cell activation syndrome
     Route: 048
  2. ANASTROZOLE [Suspect]
     Active Substance: ANASTROZOLE
     Indication: Mast cell activation syndrome
     Route: 048
  3. ALBUTEROL [Concomitant]
     Active Substance: ALBUTEROL
     Dosage: AS NEEDED
     Route: 065
  4. APIXABAN [Concomitant]
     Active Substance: APIXABAN
  5. METFORMIN [Concomitant]
     Active Substance: METFORMIN HYDROCHLORIDE
  6. NOVORAPID [Concomitant]
     Active Substance: INSULIN ASPART
     Dosage: 5 UNITS TDS
  7. OPTISULIN [Concomitant]
     Dosage: 18 UNITS BD
  8. LORATADINE [Concomitant]
     Active Substance: LORATADINE
  9. FAMOTIDINE [Concomitant]
     Active Substance: FAMOTIDINE
  10. MONTELOUKAST [Concomitant]
     Dosage: 10 MG NIGHTLY
  11. ROSUVASTATIN [Concomitant]
     Active Substance: ROSUVASTATIN
     Dosage: 10 MG

REACTIONS (1)
  - Mast cell activation syndrome [Unknown]
